FAERS Safety Report 24423682 (Version 1)
Quarter: 2024Q4

REPORT INFORMATION
  Report Type: Spontaneous
  Country: US (occurrence: None)
  Receive Date: 20241009
  Receipt Date: 20241009
  Transmission Date: 20250115
  Serious: Yes (Hospitalization)
  Sender: Public
  Company Number: None

PATIENT
  Age: 44 Year
  Sex: Female
  Weight: 81 kg

DRUGS (4)
  1. KRYSTEXXA [Suspect]
     Active Substance: PEGLOTICASE
     Indication: Gout
     Dosage: OTHER FREQUENCY : EVERY 2 WEEKS;?
     Route: 042
     Dates: start: 20240824
  2. Solu-Medrol 80 mg IV [Concomitant]
  3. Diphenhydramine 25 mg by mouth [Concomitant]
  4. Acetaminophen 650 mg by mouth [Concomitant]

REACTIONS (4)
  - Cough [None]
  - Nausea [None]
  - Productive cough [None]
  - Hypertension [None]

NARRATIVE: CASE EVENT DATE: 20241001
